FAERS Safety Report 7479261-0 (Version None)
Quarter: 2011Q2

REPORT INFORMATION
  Report Type: 
  Country: None (occurrence: None)
  Receive Date: 20110513
  Receipt Date: 20110509
  Transmission Date: 20111010
  Serious: Yes (Hospitalization)
  Sender: FDA-Public Use
  Company Number: PL-BRISTOL-MYERS SQUIBB COMPANY-15302524

PATIENT
  Age: 44 Year
  Sex: Male

DRUGS (2)
  1. OLANZAPINE [Concomitant]
     Indication: SCHIZOPHRENIA
     Dosage: DOSE REDUCED TO 10 MG/D.20-21SEP10-15MG/D.21SEP10-20MG/D
     Dates: start: 20040101
  2. ARIPIPRAZOLE [Suspect]
     Indication: SCHIZOPHRENIA
     Route: 048
     Dates: start: 20100902, end: 20100920

REACTIONS (1)
  - SCHIZOPHRENIA [None]
